FAERS Safety Report 8849303 (Version 1)
Quarter: 2012Q4

REPORT INFORMATION
  Report Type: Spontaneous
  Country: US (occurrence: None)
  Receive Date: 20121018
  Receipt Date: 20121018
  Transmission Date: 20130627
  Serious: Yes (Hospitalization)
  Sender: FDA-Public Use
  Company Number: None

PATIENT
  Sex: Female
  Weight: 54.43 kg

DRUGS (4)
  1. EXJADE [Suspect]
     Indication: CHRONIC IRON OVERLOAD
     Dosage: 500 mg QD Po (2 tablets)
     Route: 048
     Dates: start: 20120905
  2. EXJADE [Suspect]
     Indication: SICKLE CELL DISORDERS
     Dosage: 500 mg QD Po (2 tablets)
     Route: 048
     Dates: start: 20120905
  3. EXJADE [Suspect]
     Indication: CHRONIC IRON OVERLOAD
     Dosage: 250 mg QD PO (1 QD)
     Route: 048
     Dates: start: 20120905
  4. EXJADE [Suspect]
     Indication: SICKLE CELL DISORDERS
     Dosage: 250 mg QD PO (1 QD)
     Route: 048
     Dates: start: 20120905

REACTIONS (1)
  - Hospitalisation [None]
